FAERS Safety Report 7948165-9 (Version None)
Quarter: 2011Q4

REPORT INFORMATION
  Report Type: 
  Country: None (occurrence: None)
  Receive Date: 20111125
  Receipt Date: 20111108
  Transmission Date: 20120403
  Serious: Yes (Death, Hospitalization)
  Sender: FDA-Public Use
  Company Number: FK201102668

PATIENT
  Age: 35 Year
  Sex: Female

DRUGS (3)
  1. CYCLOPHOSPHAMIDE [Suspect]
     Indication: BURKITT'S LYMPHOMA
     Dosage: 800 MG/M2
  2. DOXORUBICIN HCL [Suspect]
     Indication: BURKITT'S LYMPHOMA
     Dosage: 40 MG/M2
  3. VINCRISTINE [Suspect]
     Indication: BURKITT'S LYMPHOMA
     Dosage: 2 MG/KG

REACTIONS (10)
  - TUMOUR LYSIS SYNDROME [None]
  - RESPIRATORY FAILURE [None]
  - HYPERKALAEMIA [None]
  - LACTIC ACIDOSIS [None]
  - HAEMODIALYSIS [None]
  - DISSEMINATED INTRAVASCULAR COAGULATION [None]
  - PULMONARY ALVEOLAR HAEMORRHAGE [None]
  - BREAST ATROPHY [None]
  - VENTRICULAR FIBRILLATION [None]
  - CARDIAC ARREST [None]
